FAERS Safety Report 6623073-4 (Version None)
Quarter: 2010Q1

REPORT INFORMATION
  Report Type: 
  Country: None (occurrence: None)
  Receive Date: 20100310
  Receipt Date: 20091209
  Transmission Date: 20100710
  Serious: Yes (Hospitalization)
  Sender: FDA-Public Use
  Company Number: US-BIOGENIDEC-2009BI040463

PATIENT
  Age: 60 Year
  Sex: Female

DRUGS (3)
  1. AVONEX [Suspect]
     Indication: MULTIPLE SCLEROSIS
     Route: 030
     Dates: start: 20020101
  2. AVONEX [Suspect]
     Route: 030
     Dates: start: 20091029
  3. REBIF [Concomitant]
     Indication: MULTIPLE SCLEROSIS
     Dates: end: 20060101

REACTIONS (2)
  - ASTHENIA [None]
  - DYSPNOEA [None]
